FAERS Safety Report 16429229 (Version 6)
Quarter: 2020Q4

REPORT INFORMATION
  Report Type: Other
  Country: DE (occurrence: DE)
  Receive Date: 20190614
  Receipt Date: 20201231
  Transmission Date: 20210113
  Serious: Yes (Hospitalization, Other)
  Sender: FDA-Public Use
  Company Number: DE-ROCHE-2057077

PATIENT
  Age: 76 Year
  Sex: Female
  Weight: 95 kg

DRUGS (14)
  1. LODOTRA [Concomitant]
     Active Substance: PREDNISONE
  2. PREDNISOLON [Concomitant]
     Active Substance: PREDNISOLONE
     Indication: GIANT CELL ARTERITIS
     Dosage: TAPERING
     Route: 048
  3. PANTOPRAZOL [Concomitant]
     Active Substance: PANTOPRAZOLE SODIUM
     Route: 048
  4. LERCANIDIPINE [Concomitant]
     Active Substance: LERCANIDIPINE
  5. ALENDRONIC ACID [Concomitant]
     Active Substance: ALENDRONIC ACID
     Indication: OSTEOPOROSIS
     Route: 048
  6. FOLSAN [Concomitant]
     Active Substance: FOLIC ACID
  7. PREDNISOLON [Concomitant]
     Active Substance: PREDNISOLONE
     Route: 048
  8. MARCUMAR [Concomitant]
     Active Substance: PHENPROCOUMON
     Indication: ATRIAL FIBRILLATION
  9. ROACTEMRA [Suspect]
     Active Substance: TOCILIZUMAB
     Indication: GIANT CELL ARTERITIS
     Route: 058
     Dates: start: 20171215, end: 201910
  10. ROACTEMRA [Suspect]
     Active Substance: TOCILIZUMAB
     Route: 058
     Dates: start: 20190909
  11. PREDNISOLON [Concomitant]
     Active Substance: PREDNISOLONE
     Route: 048
  12. PREDNISOLON [Concomitant]
     Active Substance: PREDNISOLONE
  13. PANTOPRAZOL [Concomitant]
     Active Substance: PANTOPRAZOLE SODIUM
     Route: 048
  14. OXYCODONE [Concomitant]
     Active Substance: OXYCODONE

REACTIONS (14)
  - Increased appetite [Recovered/Resolved]
  - Gastrointestinal infection [Recovered/Resolved]
  - Hypotension [Recovered/Resolved]
  - Arthralgia [Recovering/Resolving]
  - Dizziness [Not Recovered/Not Resolved]
  - Ankle fracture [Recovering/Resolving]
  - Blood pressure increased [Recovered/Resolved]
  - Cardiovascular disorder [Recovering/Resolving]
  - Gastroenteritis viral [Recovered/Resolved]
  - Weight increased [Recovered/Resolved]
  - Blood pressure fluctuation [Not Recovered/Not Resolved]
  - Hypertension [Recovered/Resolved]
  - Nausea [Recovered/Resolved]
  - Fall [Unknown]

NARRATIVE: CASE EVENT DATE: 20171218
